FAERS Safety Report 9494620 (Version 1)
Quarter: 2013Q3

REPORT INFORMATION
  Report Type: Spontaneous
  Country: FR (occurrence: None)
  Receive Date: 20130828
  Receipt Date: 20130828
  Transmission Date: 20140515
  Serious: Yes (Hospitalization)
  Sender: FDA-Public Use
  Company Number: SYM-2013-08991

PATIENT
  Age: 40 Year
  Sex: Male

DRUGS (1)
  1. FLAGYL (METRONIDAZOLE) (METRONDIIDAZOLE) [Suspect]
     Indication: INFECTION
     Route: 048
     Dates: start: 20130710, end: 20130717

REACTIONS (2)
  - Hepatocellular injury [None]
  - Cholestasis [None]
